FAERS Safety Report 8681095 (Version 2)
Quarter: 2013Q4

REPORT INFORMATION
  Report Type: Spontaneous
  Country: US (occurrence: US)
  Receive Date: 20120724
  Receipt Date: 20131101
  Transmission Date: 20140711
  Serious: No
  Sender: FDA-Public Use
  Company Number: US-009507513-1207USA004255

PATIENT
  Age: 73 Year
  Sex: Female

DRUGS (3)
  1. TIMOPTIC XE [Suspect]
     Indication: INTRAOCULAR PRESSURE INCREASED
     Dosage: UNK, HS
     Route: 047
     Dates: start: 201204, end: 20120624
  2. CLONIDINE [Concomitant]
     Dosage: UNK
  3. CHLORTHALIDONE [Concomitant]
     Dosage: UNK

REACTIONS (2)
  - Application site irritation [Recovering/Resolving]
  - Eye burns [Recovering/Resolving]
